FAERS Safety Report 6860219-7 (Version None)
Quarter: 2010Q2

REPORT INFORMATION
  Report Type: 
  Country: None (occurrence: None)
  Receive Date: 20100528
  Receipt Date: 20091019
  Transmission Date: 20101027
  Serious: Yes (Other)
  Sender: FDA-Public Use
  Company Number: CIP09002798

PATIENT
  Age: 72 Year
  Sex: Male
  Weight: 78.2 kg

DRUGS (20)
  1. ACTONEL [Suspect]
     Indication: OSTEOPOROSIS
     Dosage: 35 MG ONCE WEEKLY, ORAL
     Route: 048
     Dates: start: 20060424, end: 20080701
  2. FOSAMAX [Suspect]
     Indication: OSTEOPOROSIS
     Dosage: 70 MG ONCE WEEKLY, ORAL
     Route: 048
     Dates: start: 20020225, end: 20051201
  3. CELEBREX [Concomitant]
  4. PREDNISONE TAB [Concomitant]
  5. LIPITOR [Concomitant]
  6. ATENOLOL [Concomitant]
  7. XANAX [Concomitant]
  8. ZOLOFT [Concomitant]
  9. METHOTREXATE [Concomitant]
  10. FOLIC ACID [Concomitant]
  11. ARAVA [Concomitant]
  12. CARDIZEM [Concomitant]
  13. ZOLPIDEM TARTRATE [Concomitant]
  14. ASPIRIN [Concomitant]
  15. TEMAZEPAM [Concomitant]
  16. AMBIEN [Concomitant]
  17. ASPIRIN [Concomitant]
  18. NASONEX [Concomitant]
  19. TYLENOL ARTHRITIS (PARACETAMOL) [Concomitant]
  20. LORTAB [Concomitant]

REACTIONS (16)
  - BONE DISORDER [None]
  - BONE FRAGMENTATION [None]
  - GINGIVAL ABSCESS [None]
  - GINGIVAL PAIN [None]
  - GINGIVAL SWELLING [None]
  - GINGIVITIS [None]
  - JAW DISORDER [None]
  - LOOSE TOOTH [None]
  - ORAL CAVITY FISTULA [None]
  - ORAL DISORDER [None]
  - OSTEONECROSIS [None]
  - PERIODONTAL DESTRUCTION [None]
  - PRIMARY SEQUESTRUM [None]
  - PURULENT DISCHARGE [None]
  - TOOTH EXTRACTION [None]
  - TOOTH FRACTURE [None]
